FAERS Safety Report 9633458 (Version 2)
Quarter: 2013Q4

REPORT INFORMATION
  Report Type: Spontaneous
  Country: FR (occurrence: FR)
  Receive Date: 20131021
  Receipt Date: 20131210
  Transmission Date: 20140711
  Serious: Yes (Death, Other)
  Sender: FDA-Public Use
  Company Number: FR-SA-2013SA103635

PATIENT
  Age: 73 Year
  Sex: Female

DRUGS (4)
  1. EVOLTRA [Suspect]
     Indication: ACUTE MYELOID LEUKAEMIA
     Route: 065
  2. TIENAM [Concomitant]
     Dates: start: 20130928
  3. ZELITREX [Concomitant]
  4. NOXAFIL [Concomitant]

REACTIONS (5)
  - Death [Fatal]
  - Weight increased [Unknown]
  - Off label use [Unknown]
  - Paraesthesia [Unknown]
  - Back pain [Unknown]
